FAERS Safety Report 18677664 (Version 6)
Quarter: 2021Q1

REPORT INFORMATION
  Report Type: Report from Study
  Country: CH (occurrence: CH)
  Receive Date: 20201229
  Receipt Date: 20210212
  Transmission Date: 20210419
  Serious: Yes (Hospitalization)
  Sender: FDA-Public Use
  Company Number: CH-ROCHE-2721038

PATIENT
  Age: 67 Year
  Sex: Male
  Weight: 58 kg

DRUGS (79)
  1. ATORVASTATINE [Concomitant]
     Active Substance: ATORVASTATIN
     Indication: ARTERIOSCLEROSIS
  2. BICARBONATE [Concomitant]
     Active Substance: SODIUM BICARBONATE
     Indication: DYSPHAGIA
  3. MAGNESIOCARD [Concomitant]
     Active Substance: MAGNESIUM ASPARTATE HYDROCHLORIDE
     Indication: HYPOMAGNESAEMIA
     Dates: start: 20201004
  4. MORPHINE [Concomitant]
     Active Substance: MORPHINE
     Indication: ORAL FUNGAL INFECTION
     Dates: start: 20201007, end: 20201010
  5. HEPARIN [Concomitant]
     Active Substance: HEPARIN SODIUM
     Dates: start: 20201021, end: 20201022
  6. CLEXANE [Concomitant]
     Active Substance: ENOXAPARIN SODIUM
     Dates: start: 20201103, end: 20201112
  7. NEXIUM MUPS [Concomitant]
     Active Substance: ESOMEPRAZOLE
     Dates: start: 20201201, end: 20201202
  8. PHOSCAP [Concomitant]
     Dates: start: 20210115
  9. BONIVA [Concomitant]
     Active Substance: IBANDRONATE SODIUM
     Indication: NEUROPATHY PERIPHERAL
     Dates: start: 20210202
  10. BEPANTHEN [Concomitant]
     Indication: EPISTAXIS
     Dates: start: 20200818
  11. LIDOCAINE. [Concomitant]
     Active Substance: LIDOCAINE
     Indication: DYSGEUSIA
  12. CALCIUM GLUCONATE. [Concomitant]
     Active Substance: CALCIUM GLUCONATE
     Indication: HYPOCALCAEMIA
     Dates: start: 20201004, end: 20201011
  13. DAFALGAN [Concomitant]
     Active Substance: ACETAMINOPHEN
     Dates: start: 20201021
  14. LYMAN [Concomitant]
     Dates: start: 20201005, end: 20201012
  15. CLEXANE [Concomitant]
     Active Substance: ENOXAPARIN SODIUM
     Dates: start: 20201022, end: 20201022
  16. CALCIPARINE [Concomitant]
     Active Substance: HEPARIN CALCIUM
     Dates: start: 20201230, end: 20210115
  17. NEXIUM MUPS [Concomitant]
     Active Substance: ESOMEPRAZOLE
     Dates: start: 20201230
  18. ROCALTROL [Concomitant]
     Active Substance: CALCITRIOL
     Indication: MALNUTRITION
     Dates: start: 20210104
  19. NITROGLYCERINE [Concomitant]
     Active Substance: NITROGLYCERIN
     Indication: HYPERTENSION
     Dates: start: 20210101, end: 20210103
  20. ENALAPRIL [Concomitant]
     Active Substance: ENALAPRIL
     Indication: HYPERTENSION
     Dates: start: 20210101, end: 20210105
  21. PHYSIOTENS MITE [Concomitant]
     Indication: HYPERTENSION
     Dosage: HYPERTENSION
     Dates: start: 20210102
  22. BEPANTHEN [Concomitant]
     Dates: start: 20210108
  23. MAGNESIOCARD [Concomitant]
     Active Substance: MAGNESIUM ASPARTATE HYDROCHLORIDE
     Dates: start: 20201103, end: 20201116
  24. DAFALGAN [Concomitant]
     Active Substance: ACETAMINOPHEN
     Indication: ORAL FUNGAL INFECTION
     Dates: start: 20201003, end: 20201014
  25. OCULAC (SWITZERLAND) [Concomitant]
     Indication: DRY EYE
     Dates: start: 20201008, end: 20201014
  26. FOLIC ACID. [Concomitant]
     Active Substance: FOLIC ACID
     Indication: ANAEMIA
     Dates: start: 20201014
  27. NORADRENALINE [Concomitant]
     Active Substance: NOREPINEPHRINE
     Dates: start: 20201021, end: 20201022
  28. BUPIVACAINE HCL [Concomitant]
     Active Substance: BUPIVACAINE HYDROCHLORIDE
     Indication: PROCEDURAL PAIN
     Dates: start: 20201104, end: 20201109
  29. ARANESP [Concomitant]
     Active Substance: DARBEPOETIN ALFA
     Indication: ANAEMIA
     Dates: start: 20201204, end: 20201204
  30. PANTOZOL [Concomitant]
     Active Substance: PANTOPRAZOLE SODIUM
     Dates: start: 20201129, end: 20201130
  31. MELATONIN [Concomitant]
     Active Substance: MELATONIN
     Indication: INSOMNIA
     Dates: start: 20201229, end: 20201229
  32. LACTATED RINGERS SOLUTION [Concomitant]
     Active Substance: CALCIUM CHLORIDE\POTASSIUM CHLORIDE\SODIUM CHLORIDE\SODIUM LACTATE
     Dates: start: 20210108, end: 20210108
  33. CEFEPIME [Concomitant]
     Active Substance: CEFEPIME HYDROCHLORIDE
     Indication: FEBRILE NEUTROPENIA
     Dates: start: 20201003, end: 20201010
  34. CALCIMAGON [Concomitant]
     Active Substance: CALCIUM
     Indication: HYPOCALCAEMIA
     Dates: start: 20201004
  35. KCL [Concomitant]
     Active Substance: POTASSIUM CHLORIDE
     Indication: HYPOKALAEMIA
     Dates: start: 20201005, end: 20201014
  36. BETNOVATE [Concomitant]
     Active Substance: BETAMETHASONE
     Indication: DERMO-HYPODERMITIS
     Dates: start: 20201011, end: 20201011
  37. LACRYCON [Concomitant]
     Active Substance: HYALURONATE SODIUM
     Indication: DRY EYE
     Dates: start: 20201014
  38. NORADRENALINE [Concomitant]
     Active Substance: NOREPINEPHRINE
     Dates: start: 20201104, end: 20201107
  39. MOVICOL [Concomitant]
     Active Substance: POLYETHYLENE GLYCOL 3350\POTASSIUM CHLORIDE\SODIUM BICARBONATE\SODIUM CHLORIDE
     Dates: start: 20201129, end: 20201214
  40. LASIX [Concomitant]
     Active Substance: FUROSEMIDE
     Indication: OEDEMA PERIPHERAL
     Dates: start: 20201201, end: 20201204
  41. DIALVIT [Concomitant]
     Indication: MALNUTRITION
     Dates: start: 20201214
  42. ENALAPRIL [Concomitant]
     Active Substance: ENALAPRIL
     Indication: HYPERTENSION
     Dates: start: 20201207, end: 20201221
  43. METFORMIN [Concomitant]
     Active Substance: METFORMIN HYDROCHLORIDE
     Indication: DIABETES MELLITUS
     Dates: start: 20200615
  44. MYCOSTATINE [Concomitant]
     Active Substance: NYSTATIN
     Indication: ORAL FUNGAL INFECTION
     Dates: start: 20201005, end: 20201014
  45. OXYCONTIN [Concomitant]
     Active Substance: OXYCODONE HYDROCHLORIDE
     Indication: PROCEDURAL PAIN
     Dates: start: 20201110, end: 20201112
  46. INSULIN [Concomitant]
     Active Substance: INSULIN NOS
     Indication: DIABETES MELLITUS
     Dates: start: 20201112, end: 20201118
  47. ATEZOLIZUMAB. [Suspect]
     Active Substance: ATEZOLIZUMAB
     Indication: NON-SMALL CELL LUNG CANCER
     Dosage: DATE OF MOST RECENT DOSE (1200 MG) OF BLINDED ATEZOLIZUMAB PRIOR TO AE/SAE ONSET: 23/SEP/2020.
     Route: 042
     Dates: start: 20200720
  48. CARBOPLATIN. [Suspect]
     Active Substance: CARBOPLATIN
     Indication: NON-SMALL CELL LUNG CANCER
     Dosage: DATE OF MOST RECENT DOSE OF CARBOPLATIN OF 640.2 MG PRIOR TO AE/SAE ONSET: 23/SEP/2020.?AUC OF 6 MG/
     Route: 042
     Dates: start: 20200720
  49. MINOCIN AKNE [Concomitant]
     Active Substance: MINOCYCLINE HYDROCHLORIDE
     Dates: start: 20201129, end: 20201129
  50. ATORVASTATINE [Concomitant]
     Active Substance: ATORVASTATIN
     Indication: DYSLIPIDAEMIA
  51. SPIRIVA [Concomitant]
     Active Substance: TIOTROPIUM BROMIDE MONOHYDRATE
  52. OXYNORM [Concomitant]
     Active Substance: OXYCODONE HYDROCHLORIDE
     Indication: PROCEDURAL PAIN
     Dates: start: 20201104, end: 20201105
  53. ARANESP [Concomitant]
     Active Substance: DARBEPOETIN ALFA
     Dates: start: 20201211, end: 20201211
  54. OXYGEN. [Concomitant]
     Active Substance: OXYGEN
     Dates: start: 20201116
  55. TEMESTA [Concomitant]
     Dates: start: 20201107, end: 20201107
  56. TEMESTA [Concomitant]
     Dates: start: 20201208, end: 20201208
  57. LASIX [Concomitant]
     Active Substance: FUROSEMIDE
     Indication: CARDIAC FAILURE
     Dates: start: 20201109, end: 20201109
  58. LASIX [Concomitant]
     Active Substance: FUROSEMIDE
     Indication: PULMONARY OEDEMA
     Dates: start: 20200101, end: 20210101
  59. RINOSEDIN [Concomitant]
     Indication: EPISTAXIS
     Dates: start: 20210107
  60. ISOKET [Concomitant]
     Active Substance: ISOSORBIDE DINITRATE
     Indication: HYPERTENSION
     Dates: start: 20210101, end: 20210101
  61. NAB?PACLITAXEL [Suspect]
     Active Substance: PACLITAXEL
     Indication: NON-SMALL CELL LUNG CANCER
     Dosage: DATE OF MOST RECENT DOSE OF NAB?PACLITAXEL OF 170 MG PRIOR TO AE/SAE ONSET: 29/SEP/2020.
     Route: 042
     Dates: start: 20200720
  62. ISOPHANE INSULIN [Concomitant]
     Active Substance: INSULIN NOS
     Indication: DIABETES MELLITUS
     Dates: start: 20201211
  63. ASPIRIN CARDIO [Concomitant]
     Active Substance: ASPIRIN
     Indication: ARTERIOSCLEROSIS
  64. BICARBONATE [Concomitant]
     Active Substance: SODIUM BICARBONATE
     Indication: DYSGEUSIA
     Dates: start: 20200817
  65. LIDOCAINE. [Concomitant]
     Active Substance: LIDOCAINE
     Indication: DYSPHAGIA
     Dates: start: 20200817
  66. MORPHINE [Concomitant]
     Active Substance: MORPHINE
     Indication: PROCEDURAL PAIN
     Dates: start: 20201107, end: 20201110
  67. TRAMAL [Concomitant]
     Active Substance: TRAMADOL
     Dates: start: 20201022, end: 20201022
  68. IMPORTAL [Concomitant]
     Active Substance: LACTITOL
     Indication: CONSTIPATION
     Dates: start: 20201106, end: 20201113
  69. DIALVIT [Concomitant]
     Dates: start: 20210104
  70. LAXOBERON [Concomitant]
     Active Substance: SODIUM PICOSULFATE
     Indication: CONSTIPATION
     Dates: start: 20201129, end: 20201130
  71. LACTATED RINGERS SOLUTION [Concomitant]
     Active Substance: CALCIUM CHLORIDE\POTASSIUM CHLORIDE\SODIUM CHLORIDE\SODIUM LACTATE
     Indication: MALNUTRITION
     Dates: start: 20201130, end: 20201201
  72. POTASSIUM PHOSPHATE [Concomitant]
     Active Substance: POTASSIUM PHOSPHATE
     Indication: HYPOKALAEMIA
     Dates: start: 20201004, end: 20201009
  73. MOVICOL [Concomitant]
     Active Substance: POLYETHYLENE GLYCOL 3350\POTASSIUM CHLORIDE\SODIUM BICARBONATE\SODIUM CHLORIDE
     Indication: CONSTIPATION
     Dates: start: 20201107, end: 20201108
  74. CALCIPARINE [Concomitant]
     Active Substance: HEPARIN CALCIUM
     Dates: start: 20201129, end: 20201221
  75. PANTOZOL [Concomitant]
     Active Substance: PANTOPRAZOLE SODIUM
     Dates: start: 20201105, end: 20201116
  76. TORASEMIDE [Concomitant]
     Active Substance: TORSEMIDE
     Indication: OEDEMA PERIPHERAL
     Dates: start: 20201204
  77. AMLODIPINE [Concomitant]
     Active Substance: AMLODIPINE BESYLATE
     Indication: HYPERTENSION
     Dates: start: 20201207
  78. DERMOVATE [Concomitant]
     Active Substance: CLOBETASOL
     Indication: PURPURA
     Dates: start: 20201202
  79. NOVORAPID [Concomitant]
     Active Substance: INSULIN ASPART
     Indication: DIABETES MELLITUS
     Dates: start: 20201210

REACTIONS (4)
  - Atrial fibrillation [Not Recovered/Not Resolved]
  - Pneumonia [Recovered/Resolved]
  - Chronic kidney disease [Not Recovered/Not Resolved]
  - Vasculitis [Not Recovered/Not Resolved]

NARRATIVE: CASE EVENT DATE: 20201106
